FAERS Safety Report 26116709 (Version 1)
Quarter: 2025Q4

REPORT INFORMATION
  Report Type: Spontaneous
  Country: US (occurrence: None)
  Receive Date: 20251202
  Receipt Date: 20251202
  Transmission Date: 20260117
  Serious: Yes (Hospitalization)
  Sender: FDA-CTU
  Company Number: None

PATIENT
  Sex: Female
  Weight: 72.45 kg

DRUGS (2)
  1. WINREVAIR [Suspect]
     Active Substance: SOTATERCEPT-CSRK
     Indication: Pulmonary arterial hypertension
     Dosage: 1.1 ML EVERY 3 WEEKS SUBCUTANEOUS?
     Route: 058
     Dates: start: 20250731
  2. REMODULIN [Suspect]
     Active Substance: TREPROSTINIL

REACTIONS (5)
  - Syncope [None]
  - Fall [None]
  - Nausea [None]
  - Vomiting [None]
  - Diarrhoea [None]
